FAERS Safety Report 15558708 (Version 1)
Quarter: 2018Q4

REPORT INFORMATION
  Report Type: Spontaneous
  Country: FR (occurrence: FR)
  Receive Date: 20181029
  Receipt Date: 20181029
  Transmission Date: 20190205
  Serious: Yes (Hospitalization)
  Sender: FDA-Public Use
  Company Number: FR-ACCORD-073892

PATIENT
  Age: 60 Year
  Sex: Male
  Weight: 108 kg

DRUGS (1)
  1. METHOTREXATE. [Suspect]
     Active Substance: METHOTREXATE
     Indication: PSORIASIS
     Route: 048
     Dates: start: 201708, end: 20171016

REACTIONS (3)
  - Testicular abscess [Recovered/Resolved]
  - Abscess limb [Recovering/Resolving]
  - Groin abscess [Recovered/Resolved]

NARRATIVE: CASE EVENT DATE: 201709
